FAERS Safety Report 25858161 (Version 1)
Quarter: 2025Q3

REPORT INFORMATION
  Report Type: Spontaneous
  Country: EU (occurrence: EU)
  Receive Date: 20250929
  Receipt Date: 20250929
  Transmission Date: 20251020
  Serious: Yes (Other)
  Sender: MYLAN
  Company Number: EU-MYLANLABS-2025M1081427

PATIENT
  Age: 77 Year
  Sex: Male

DRUGS (3)
  1. ABIRATERONE [Suspect]
     Active Substance: ABIRATERONE
     Indication: Prostatic adenoma
     Dosage: 1000 MILLIGRAM, QD
     Dates: end: 202407
  2. ENZALUTAMIDE [Suspect]
     Active Substance: ENZALUTAMIDE
     Indication: Prostatic adenoma
     Dosage: 160 MILLIGRAM, QD
     Dates: start: 202209
  3. LEUPROLIDE [Suspect]
     Active Substance: LEUPROLIDE
     Indication: Prostatic adenoma
     Dosage: 11.25 MG/ML EVERY 3 MONTHS FOR 11 YEARS (SINCE 2011), Q3MONTHS
     Dates: start: 2011

REACTIONS (3)
  - Hereditary optic atrophy [Recovering/Resolving]
  - Drug ineffective [Unknown]
  - Disease progression [Unknown]

NARRATIVE: CASE EVENT DATE: 20230401
